FAERS Safety Report 15291777 (Version 1)
Quarter: 2018Q4

REPORT INFORMATION
  Report Type: Spontaneous
  Country: US (occurrence: US)
  Receive Date: 20180817
  Receipt Date: 20180817
  Transmission Date: 20190204
  Serious: No
  Sender: FDA-Public Use
  Company Number: US-BAUSCH-BL-2018-021332

PATIENT
  Age: 2 Year
  Sex: Female
  Weight: 11.35 kg

DRUGS (3)
  1. ACETAMINOPHEN. [Concomitant]
     Active Substance: ACETAMINOPHEN
     Indication: PRODUCT USED FOR UNKNOWN INDICATION
     Dosage: AS NEEDED
     Route: 048
  2. ZYLET [Suspect]
     Active Substance: LOTEPREDNOL ETABONATE\TOBRAMYCIN
     Indication: POSTOPERATIVE CARE
     Route: 031
     Dates: start: 20180801
  3. IBUPROFEN. [Concomitant]
     Active Substance: IBUPROFEN
     Indication: PRODUCT USED FOR UNKNOWN INDICATION
     Dosage: AS NEEDED
     Route: 048

REACTIONS (4)
  - Eye pain [Not Recovered/Not Resolved]
  - Crying [Not Recovered/Not Resolved]
  - Eye irritation [Not Recovered/Not Resolved]
  - Screaming [Not Recovered/Not Resolved]

NARRATIVE: CASE EVENT DATE: 20180801
